FAERS Safety Report 13574152 (Version 1)
Quarter: 2017Q2

REPORT INFORMATION
  Report Type: Spontaneous
  Country: GB (occurrence: GB)
  Receive Date: 20170523
  Receipt Date: 20170523
  Transmission Date: 20170830
  Serious: Yes (Hospitalization, Other)
  Sender: FDA-Public Use
  Company Number: GB-KALEO, INC-EPIN20170004

PATIENT
  Age: 66 Year
  Sex: Male

DRUGS (2)
  1. DEXAMETHASONE. [Suspect]
     Active Substance: DEXAMETHASONE
     Indication: OBSTRUCTIVE AIRWAYS DISORDER
     Dosage: UNKNOWN
     Route: 042
  2. EPINEPHRINE. [Suspect]
     Active Substance: EPINEPHRINE
     Indication: OBSTRUCTIVE AIRWAYS DISORDER
     Dosage: 1 UG/5ML

REACTIONS (6)
  - Electrocardiogram T wave inversion [Unknown]
  - Stress cardiomyopathy [Unknown]
  - Electrocardiogram QT prolonged [Unknown]
  - Ejection fraction decreased [Unknown]
  - Myocardial necrosis marker increased [Unknown]
  - Troponin T increased [Unknown]
